FAERS Safety Report 10202145 (Version 1)
Quarter: 2014Q2

REPORT INFORMATION
  Report Type: Spontaneous
  Country: US (occurrence: US)
  Receive Date: 20140528
  Receipt Date: 20140528
  Transmission Date: 20141212
  Serious: No
  Sender: FDA-Public Use
  Company Number: US-BRISTOL-MYERS SQUIBB COMPANY-19990472

PATIENT
  Age: 50 Year
  Sex: Female
  Weight: 64.4 kg

DRUGS (16)
  1. GLUCOPHAGE [Suspect]
     Dates: start: 200508
  2. METFORMIN HCL [Suspect]
  3. LANTUS [Concomitant]
     Dosage: 1DF=80U, LANTUS 80U QAM AND HS
  4. GABAPENTIN [Concomitant]
     Dosage: 800MG QID
  5. HUMALOG [Concomitant]
     Dosage: 1DF=25UNITS
  6. NEXIUM [Concomitant]
  7. ESTRADIOL [Concomitant]
     Dosage: PATCHES
  8. LIPITOR [Concomitant]
  9. LISINOPRIL [Concomitant]
  10. ONDANSETRON [Concomitant]
     Indication: NAUSEA
     Dosage: ONDANSETRON ODT 4MG PRN NAUSEA
  11. ALLOPURINOL [Concomitant]
  12. RELPAX [Concomitant]
     Indication: MIGRAINE
  13. NORCO [Concomitant]
     Indication: PAIN
     Dosage: 1DF= NORCO 10/325MG PRN Q6H.
  14. FENTANYL PATCH [Concomitant]
  15. VALIUM [Concomitant]
  16. ALBUTEROL INHALER [Concomitant]

REACTIONS (7)
  - Nausea [Unknown]
  - Glycosylated haemoglobin increased [Unknown]
  - Abdominal discomfort [Unknown]
  - Diarrhoea [Unknown]
  - Vomiting [Unknown]
  - Retching [Unknown]
  - Weight decreased [Unknown]
